FAERS Safety Report 7719681-X (Version None)
Quarter: 2011Q3

REPORT INFORMATION
  Report Type: 
  Country: None (occurrence: None)
  Receive Date: 20110830
  Receipt Date: 20110822
  Transmission Date: 20111222
  Serious: Yes (Other)
  Sender: FDA-Public Use
  Company Number: US-BAYER-201030215NA

PATIENT
  Age: 22 Year
  Sex: Female
  Weight: 68 kg

DRUGS (15)
  1. YASMIN [Suspect]
     Dosage: UNK
     Route: 048
     Dates: start: 20080301, end: 20090701
  2. YAZ [Suspect]
     Dosage: UNK
     Route: 048
     Dates: start: 20080301, end: 20090701
  3. AMOXICILLIN [Concomitant]
     Indication: HELICOBACTER GASTRITIS
     Route: 065
  4. OTHER ANALGESICS AND ANTIPYRETICS [Concomitant]
     Route: 065
  5. BENTYL [Concomitant]
     Indication: PAIN
     Dosage: AS NEEDED
     Route: 065
  6. PREVPAC [Concomitant]
     Route: 065
  7. EXCEDRIN ASPIRIN FREE [Concomitant]
     Route: 065
  8. TRIPLE SOLUTION [Concomitant]
     Indication: HELICOBACTER GASTRITIS
     Route: 065
  9. PREVPAC [Concomitant]
     Route: 065
  10. MULTI-VITAMIN [Concomitant]
     Route: 065
  11. PRILOSEC [Concomitant]
     Route: 048
     Dates: start: 20090201, end: 20090301
  12. LACTULOSE [Concomitant]
     Dosage: 10 GM/15ML
     Route: 065
     Dates: start: 20090301
  13. NEXIUM [Concomitant]
     Indication: GASTROOESOPHAGEAL REFLUX DISEASE
     Route: 065
  14. TRIPLE SOLUTION [Concomitant]
     Route: 065
  15. DROSPIRENONE AND ETHINYL ESTRADIOL [Suspect]
     Dosage: UNK
     Route: 048
     Dates: start: 20080301, end: 20090701

REACTIONS (8)
  - ABDOMINAL PAIN [None]
  - CONSTIPATION [None]
  - POLLAKIURIA [None]
  - VOMITING [None]
  - GALLBLADDER DISORDER [None]
  - BILIARY DYSKINESIA [None]
  - DIARRHOEA [None]
  - NAUSEA [None]
